FAERS Safety Report 21927500 (Version 2)
Quarter: 2023Q1

REPORT INFORMATION
  Report Type: Spontaneous
  Country: US (occurrence: US)
  Receive Date: 20230130
  Receipt Date: 20230317
  Transmission Date: 20230417
  Serious: No
  Sender: FDA-Public Use
  Company Number: US-002147023-NVSC2023US020162

PATIENT
  Sex: Male

DRUGS (4)
  1. MEKINIST [Suspect]
     Active Substance: TRAMETINIB DIMETHYL SULFOXIDE
     Indication: Thyroid cancer
     Dosage: 2 MG, QD
     Route: 048
     Dates: start: 202208
  2. TAFINLAR [Suspect]
     Active Substance: DABRAFENIB MESYLATE
     Indication: Thyroid cancer
     Dosage: 150 MG, BID
     Route: 048
     Dates: start: 202208
  3. TAFINLAR [Suspect]
     Active Substance: DABRAFENIB MESYLATE
     Dosage: 75 MG
     Route: 048
  4. TAFINLAR [Suspect]
     Active Substance: DABRAFENIB MESYLATE
     Dosage: 50 MG, Q12H
     Route: 048

REACTIONS (3)
  - Bone pain [Unknown]
  - Fatigue [Unknown]
  - Myalgia [Unknown]
